FAERS Safety Report 20797276 (Version 1)
Quarter: 2022Q2

REPORT INFORMATION
  Report Type: Spontaneous
  Country: AU (occurrence: AU)
  Receive Date: 20220506
  Receipt Date: 20220506
  Transmission Date: 20220721
  Serious: Yes (Other)
  Sender: FDA-Public Use
  Company Number: AU-TEVA-2022-AU-2033825

PATIENT
  Age: 47 Year
  Sex: Female

DRUGS (2)
  1. IMATINIB [Suspect]
     Active Substance: IMATINIB
     Indication: Chronic myeloid leukaemia
     Route: 065
     Dates: start: 20160919, end: 2017
  2. IMATINIB [Suspect]
     Active Substance: IMATINIB
     Dosage: 400 MILLIGRAM DAILY;
     Route: 065
     Dates: start: 201910, end: 20201110

REACTIONS (7)
  - Blast crisis in myelogenous leukaemia [Unknown]
  - Philadelphia chromosome positive [Unknown]
  - Drug intolerance [Unknown]
  - Fatigue [Unknown]
  - Muscle spasms [Unknown]
  - Splenomegaly [Unknown]
  - Treatment noncompliance [Unknown]

NARRATIVE: CASE EVENT DATE: 20170101
